FAERS Safety Report 8836882 (Version 1)
Quarter: 2012Q4

REPORT INFORMATION
  Report Type: 
  Country: CH (occurrence: CH)
  Receive Date: 20121012
  Receipt Date: 20121012
  Transmission Date: 20130627
  Serious: Yes (Hospitalization, Other)
  Sender: FDA-Public Use
  Company Number: CH-PFIZER INC-2012251637

PATIENT
  Age: 45 Year
  Sex: Female

DRUGS (12)
  1. ALDACTONE [Suspect]
     Indication: HYPOKALAEMIA
     Dosage: 100 mg, 2x/day
     Route: 048
     Dates: start: 201111, end: 20120301
  2. TRUVADA [Interacting]
     Indication: ASYMPTOMATIC HIV INFECTION
     Dosage: 1 DF, 1x/day
     Route: 048
     Dates: start: 201104, end: 20120301
  3. NORVIR [Interacting]
     Indication: ASYMPTOMATIC HIV INFECTION
     Dosage: 100 mg, 2x/day
     Route: 048
     Dates: start: 201104, end: 20120301
  4. ORFIRIL [Suspect]
     Indication: SCHIZOPHRENIA, PARANOID TYPE
     Dosage: 900 mg, 2x/day
     Route: 048
     Dates: start: 2011
  5. PREZISTA [Concomitant]
     Indication: ASYMPTOMATIC HIV INFECTION
     Dosage: 600 mg, 2x/day
     Route: 048
     Dates: start: 201104, end: 20120301
  6. BECOZYM [Concomitant]
     Dosage: 1 DF, 1x/day
     Route: 048
     Dates: start: 201110, end: 20120301
  7. BENERVA [Concomitant]
     Dosage: 300 mg, 1x/day
     Route: 048
     Dates: start: 2011, end: 20120301
  8. ZYPREXA [Concomitant]
     Dosage: 2.5 mg, 2x/day
     Route: 048
     Dates: start: 2011
  9. TEMESTA [Concomitant]
     Dosage: 1 mg, daily
     Route: 048
     Dates: start: 2011
  10. AKINETON RETARD [Concomitant]
     Dosage: 4 mg, daily
     Route: 048
     Dates: start: 2011
  11. MAGNESIUM [Concomitant]
     Dosage: 10 mmol, 2x/day
     Route: 048
     Dates: start: 2011
  12. VITAMIN D [Concomitant]
     Dosage: 45000 IU, weekly

REACTIONS (5)
  - Renal failure acute [Unknown]
  - Fanconi syndrome [Unknown]
  - Renal tubular acidosis [Unknown]
  - Clostridium colitis [Recovered/Resolved]
  - Drug interaction [Unknown]
